FAERS Safety Report 5660886-X (Version None)
Quarter: 2008Q1

REPORT INFORMATION
  Report Type: 
  Country: None (occurrence: None)
  Receive Date: 20080311
  Receipt Date: 20080305
  Transmission Date: 20080703
  Serious: Yes (Other)
  Sender: FDA-Public Use
  Company Number: US-ASTRAZENECA-2008UW04520

PATIENT
  Age: 66 Year
  Sex: Female
  Weight: 82.6 kg

DRUGS (4)
  1. TAMOXIFEN [Suspect]
     Indication: BREAST CANCER
     Route: 048
     Dates: start: 19940101
  2. ARIMIDEX [Suspect]
     Indication: BREAST CANCER
     Route: 048
     Dates: start: 19970101, end: 20061201
  3. CHEMOTHERAPY [Concomitant]
  4. PRILOSEC [Concomitant]
     Route: 048

REACTIONS (3)
  - DISEASE PROGRESSION [None]
  - RECURRENT CANCER [None]
  - SURGERY [None]
